FAERS Safety Report 13859817 (Version 1)
Quarter: 2017Q3

REPORT INFORMATION
  Report Type: Report from Study
  Country: US (occurrence: US)
  Receive Date: 20170811
  Receipt Date: 20170811
  Transmission Date: 20171127
  Serious: Yes (Death)
  Sender: FDA-Public Use
  Company Number: US-PFIZER INC-2017342838

PATIENT
  Sex: Female

DRUGS (2)
  1. FENTANYL CITRATE. [Suspect]
     Active Substance: FENTANYL CITRATE
     Dosage: UNK
  2. DIAZEPAM. [Suspect]
     Active Substance: DIAZEPAM
     Dosage: UNK

REACTIONS (6)
  - Hypotension [Fatal]
  - Depressed level of consciousness [Fatal]
  - Respiratory depression [Fatal]
  - Coma [Fatal]
  - Toxicity to various agents [Fatal]
  - Metabolic acidosis [Fatal]
